FAERS Safety Report 10424444 (Version 1)
Quarter: 2014Q3

REPORT INFORMATION
  Report Type: Spontaneous
  Country: US (occurrence: None)
  Receive Date: 20140722
  Receipt Date: 20140722
  Transmission Date: 20150326
  Serious: No
  Sender: FDA-Public Use
  Company Number: 163-10004-14050459

PATIENT
  Age: 38 Year
  Sex: Male
  Weight: 72.58 kg

DRUGS (2)
  1. OTEZLA [Suspect]
     Active Substance: APREMILAST
     Indication: PSORIATIC ARTHROPATHY
     Route: 048
     Dates: start: 2014
  2. CELEBREX [Concomitant]
     Active Substance: CELECOXIB

REACTIONS (7)
  - Decreased appetite [None]
  - Abdominal discomfort [None]
  - Nasal congestion [None]
  - Myalgia [None]
  - Diarrhoea [None]
  - Nausea [None]
  - Headache [None]

NARRATIVE: CASE EVENT DATE: 2014
